FAERS Safety Report 5849332-0 (Version None)
Quarter: 2008Q3

REPORT INFORMATION
  Report Type: 
  Country: None (occurrence: None)
  Receive Date: 20080819
  Receipt Date: 20080528
  Transmission Date: 20090109
  Serious: No
  Sender: FDA-Public Use
  Company Number: US-BAYER-200824559NA

PATIENT
  Age: 41 Year
  Sex: Female

DRUGS (1)
  1. MIRENA [Suspect]
     Indication: CONTRACEPTION
     Route: 015
     Dates: start: 20080515

REACTIONS (9)
  - ABDOMINAL DISTENSION [None]
  - ALOPECIA [None]
  - BREAST PAIN [None]
  - BREAST TENDERNESS [None]
  - DIZZINESS [None]
  - FATIGUE [None]
  - PRURITUS [None]
  - SWELLING FACE [None]
  - VAGINAL ODOUR [None]
